FAERS Safety Report 12450261 (Version 1)
Quarter: 2016Q2

REPORT INFORMATION
  Report Type: Spontaneous
  Country: DE (occurrence: DE)
  Receive Date: 20160609
  Receipt Date: 20160609
  Transmission Date: 20160815
  Serious: Yes (Hospitalization)
  Sender: FDA-Public Use
  Company Number: DE-ROCHE-1769557

PATIENT
  Age: 65 Year

DRUGS (35)
  1. DIAZEPAM. [Suspect]
     Active Substance: DIAZEPAM
     Dosage: DOSE REDUCED
     Route: 048
     Dates: start: 20140607, end: 20140609
  2. EUTHYROX [Concomitant]
     Active Substance: LEVOTHYROXINE SODIUM
     Route: 048
  3. FLUPHENAZINE [Suspect]
     Active Substance: FLUPHENAZINE
     Route: 065
     Dates: start: 20140527
  4. FLUPHENAZINE [Suspect]
     Active Substance: FLUPHENAZINE
     Route: 065
     Dates: start: 20140602
  5. METFORMIN [Concomitant]
     Active Substance: METFORMIN HYDROCHLORIDE
     Route: 048
     Dates: start: 2012
  6. IBUPROFEN. [Concomitant]
     Active Substance: IBUPROFEN
     Route: 048
     Dates: start: 20140528, end: 20140606
  7. IBUPROFEN. [Concomitant]
     Active Substance: IBUPROFEN
     Route: 048
     Dates: start: 20140607
  8. SEROQUEL [Suspect]
     Active Substance: QUETIAPINE FUMARATE
     Dosage: 1000 BIS 400 MG
     Route: 048
     Dates: start: 20140322, end: 20140424
  9. SEROQUEL [Suspect]
     Active Substance: QUETIAPINE FUMARATE
     Route: 048
     Dates: start: 20140526, end: 20140611
  10. FLUPHENAZINE [Suspect]
     Active Substance: FLUPHENAZINE
     Indication: PRODUCT USED FOR UNKNOWN INDICATION
     Route: 065
     Dates: start: 20141017
  11. DIAZEPAM. [Suspect]
     Active Substance: DIAZEPAM
     Route: 048
     Dates: start: 20140528
  12. DIAZEPAM. [Suspect]
     Active Substance: DIAZEPAM
     Dosage: DOSE REDUCED
     Route: 048
     Dates: start: 20140610, end: 20140621
  13. SPIRONOLACTON [Concomitant]
     Active Substance: SPIRONOLACTONE
     Route: 048
     Dates: start: 2012, end: 20140410
  14. DIAZEPAM. [Suspect]
     Active Substance: DIAZEPAM
     Dosage: DOSE INCREASED
     Route: 048
     Dates: start: 20140527
  15. ROHYPNOL [Suspect]
     Active Substance: FLUNITRAZEPAM
     Dosage: DOSE REDUCED
     Route: 048
     Dates: start: 20140531, end: 20140611
  16. SEROQUEL [Suspect]
     Active Substance: QUETIAPINE FUMARATE
     Route: 048
     Dates: start: 20140425, end: 20140514
  17. FLUPHENAZINE [Suspect]
     Active Substance: FLUPHENAZINE
     Route: 065
     Dates: start: 20140618
  18. QUILONUM RETARD [Suspect]
     Active Substance: LITHIUM CARBONATE
     Dosage: 18900 MG
     Route: 048
     Dates: start: 20140328, end: 20140424
  19. DIAZEPAM. [Suspect]
     Active Substance: DIAZEPAM
     Route: 048
     Dates: start: 20140529, end: 20140530
  20. DIAZEPAM. [Suspect]
     Active Substance: DIAZEPAM
     Dosage: DOSE REDUCED
     Route: 048
     Dates: start: 20140605, end: 20140606
  21. TILIDIN COMP [Concomitant]
     Active Substance: NALOXONE HYDROCHLORIDE\TILIDINE HYDROCHLORIDE
     Route: 048
     Dates: start: 20140526
  22. SEROQUEL [Suspect]
     Active Substance: QUETIAPINE FUMARATE
     Indication: PRODUCT USED FOR UNKNOWN INDICATION
     Dosage: PROLONG 400 BIS 1200 MG
     Route: 048
     Dates: start: 2012, end: 2014
  23. QUILONUM RETARD [Suspect]
     Active Substance: LITHIUM CARBONATE
     Indication: PRODUCT USED FOR UNKNOWN INDICATION
     Dosage: 450 - 900 MG
     Route: 048
  24. QUILONUM RETARD [Suspect]
     Active Substance: LITHIUM CARBONATE
     Dosage: 9000 MG
     Route: 048
     Dates: start: 20140425, end: 20140514
  25. QUILONUM RETARD [Suspect]
     Active Substance: LITHIUM CARBONATE
     Dosage: 13500 MG
     Route: 048
     Dates: start: 20140515, end: 20140605
  26. QUILONUM RETARD [Suspect]
     Active Substance: LITHIUM CARBONATE
     Route: 048
     Dates: start: 20140606
  27. IBUPROFEN. [Concomitant]
     Active Substance: IBUPROFEN
     Dosage: 2400 MG TOTAL
     Route: 048
     Dates: start: 20140526, end: 20140527
  28. ROHYPNOL [Suspect]
     Active Substance: FLUNITRAZEPAM
     Indication: PRODUCT USED FOR UNKNOWN INDICATION
     Route: 048
     Dates: start: 20140529, end: 20140530
  29. SEROQUEL [Suspect]
     Active Substance: QUETIAPINE FUMARATE
     Route: 048
     Dates: start: 20140515, end: 20140525
  30. SEROQUEL [Suspect]
     Active Substance: QUETIAPINE FUMARATE
     Route: 048
     Dates: start: 20140612
  31. CIATYL-Z [Suspect]
     Active Substance: ZUCLOPENTHIXOL
     Indication: PRODUCT USED FOR UNKNOWN INDICATION
     Route: 065
     Dates: start: 20140527
  32. DIAZEPAM. [Suspect]
     Active Substance: DIAZEPAM
     Indication: PRODUCT USED FOR UNKNOWN INDICATION
     Dosage: 60 MG TOTAL
     Route: 048
     Dates: start: 20140601, end: 20140604
  33. DIAZEPAM. [Suspect]
     Active Substance: DIAZEPAM
     Dosage: DOSE INCREASED
     Route: 048
     Dates: start: 20140531
  34. SPIRONOLACTON [Concomitant]
     Active Substance: SPIRONOLACTONE
     Route: 048
     Dates: start: 20140411
  35. TORASEMIDE [Concomitant]
     Active Substance: TORSEMIDE
     Route: 048
     Dates: start: 2010

REACTIONS (2)
  - Speech disorder [Unknown]
  - Salivary hypersecretion [Recovering/Resolving]

NARRATIVE: CASE EVENT DATE: 20140529
